FAERS Safety Report 19036601 (Version 1)
Quarter: 2021Q1

REPORT INFORMATION
  Report Type: Report from Study
  Country: None (occurrence: US)
  Receive Date: 20210322
  Receipt Date: 20210322
  Transmission Date: 20210420
  Serious: Yes (Hospitalization, Other)
  Sender: FDA-Public Use
  Company Number: US-ABBVIE-21K-163-3820863-00

PATIENT
  Sex: Male

DRUGS (3)
  1. HUMIRA [Suspect]
     Active Substance: ADALIMUMAB
     Dosage: DAY 15
     Route: 058
     Dates: start: 20200827, end: 20200827
  2. HUMIRA [Suspect]
     Active Substance: ADALIMUMAB
     Indication: COLITIS ULCERATIVE
     Dosage: DAY 29
     Route: 058
     Dates: start: 20200910, end: 202012
  3. HUMIRA [Suspect]
     Active Substance: ADALIMUMAB
     Indication: COLITIS ULCERATIVE
     Dosage: DAY 01
     Route: 058
     Dates: start: 20200813, end: 20200813

REACTIONS (2)
  - Peripheral artery thrombosis [Recovering/Resolving]
  - Carpal tunnel syndrome [Unknown]

NARRATIVE: CASE EVENT DATE: 2020
